FAERS Safety Report 6858724-2 (Version None)
Quarter: 2010Q3

REPORT INFORMATION
  Report Type: 
  Country: None (occurrence: None)
  Receive Date: 20100719
  Receipt Date: 20080211
  Transmission Date: 20110219
  Serious: No
  Sender: FDA-Public Use
  Company Number: US-PFIZER INC-2008014323

PATIENT
  Sex: Female
  Weight: 54.545 kg

DRUGS (4)
  1. CHANTIX [Suspect]
     Indication: SMOKING CESSATION THERAPY
     Route: 048
     Dates: start: 20080209
  2. NOREL [Concomitant]
     Route: 048
  3. ADVIL LIQUI-GELS [Concomitant]
     Route: 048
  4. FOSAMAX [Concomitant]
     Route: 048

REACTIONS (3)
  - DIZZINESS [None]
  - NAUSEA [None]
  - VOMITING [None]
